FAERS Safety Report 5290627-X (Version None)
Quarter: 2007Q2

REPORT INFORMATION
  Report Type: 
  Country: None (occurrence: None)
  Receive Date: 20070402
  Receipt Date: 20070326
  Transmission Date: 20071010
  Serious: Yes (Disabling)
  Sender: FDA-Public Use
  Company Number: 2006-148394-NL

PATIENT
  Age: 28 Year
  Sex: Female

DRUGS (1)
  1. ETONOGESTREL [Suspect]
     Indication: CONTRACEPTION
     Dosage: DF
     Dates: start: 20060101, end: 20060912

REACTIONS (13)
  - ASTHENIA [None]
  - COMPLICATION OF DEVICE REMOVAL [None]
  - DENERVATION ATROPHY [None]
  - DYSAESTHESIA [None]
  - MEDIAN NERVE LESION [None]
  - MOTOR DYSFUNCTION [None]
  - MUSCLE ATROPHY [None]
  - MUSCULAR WEAKNESS [None]
  - NEURITIS [None]
  - PAIN IN EXTREMITY [None]
  - PARAESTHESIA [None]
  - PROCEDURAL PAIN [None]
  - SENSORY DISTURBANCE [None]
